FAERS Safety Report 14418830 (Version 1)
Quarter: 2018Q1

REPORT INFORMATION
  Report Type: Spontaneous
  Country: US (occurrence: US)
  Receive Date: 20180122
  Receipt Date: 20180122
  Transmission Date: 20180509
  Serious: No
  Sender: FDA-Public Use
  Company Number: US-TEVA-2017-US-836158

PATIENT
  Sex: Female

DRUGS (1)
  1. AMPHETAMINE W/DEXTROAMPHETAMINE [Suspect]
     Active Substance: AMPHETAMINE SULFATE\DEXTROAMPHETAMINE
     Route: 065

REACTIONS (8)
  - Fatigue [Unknown]
  - Asthenopia [Unknown]
  - Drug ineffective [Unknown]
  - Apathy [Unknown]
  - Irritability [Unknown]
  - Anger [Unknown]
  - Disturbance in attention [Unknown]
  - Somnolence [Unknown]
